FAERS Safety Report 9390397 (Version 1)
Quarter: 2013Q2

REPORT INFORMATION
  Report Type: Spontaneous
  Country: US (occurrence: None)
  Receive Date: 20130625
  Receipt Date: 20130625
  Transmission Date: 20140414
  Serious: Yes (Death, Hospitalization)
  Sender: FDA-Public Use
  Company Number: 2013PROUSA02865

PATIENT
  Age: 76 Year
  Sex: Male
  Weight: 71.2 kg

DRUGS (9)
  1. PROVENGE (SIPULEUCEL-T) SUSPENSION, 250ML [Suspect]
     Indication: PROSTATE CANCER METASTATIC
     Dosage: SINGLE
     Route: 042
     Dates: start: 20130509, end: 20130509
  2. CASODEX (BICALUTAMIDE) [Concomitant]
  3. SIMVASTATIN (SIMVASTATIN) [Concomitant]
  4. LUPRON (LEUPRORELIN ACETATE) [Concomitant]
  5. LEVOTHYROXINE (LEVOTHYROXINE SODIUM) [Concomitant]
  6. CIPRO (CIPROFLOXACIN HYDROCHLORIDE) [Concomitant]
  7. ZOFRAN (ONDANSETRON HYDROCHLORIDE) [Concomitant]
  8. PHENERGAN (PROMETHAZINE) [Concomitant]
  9. HEPARIN (HEPARIN SODIUM) [Concomitant]

REACTIONS (2)
  - Post procedural haematuria [None]
  - Urethritis noninfective [None]
